FAERS Safety Report 22039906 (Version 1)
Quarter: 2023Q1

REPORT INFORMATION
  Report Type: Spontaneous
  Country: US (occurrence: None)
  Receive Date: 20230224
  Receipt Date: 20230224
  Transmission Date: 20230417
  Serious: Yes (Other)
  Sender: FDA-Public Use
  Company Number: None

PATIENT
  Age: 83 Year
  Sex: Female

DRUGS (19)
  1. AMBRISENTAN [Suspect]
     Active Substance: AMBRISENTAN
     Indication: Pulmonary arterial hypertension
     Dosage: FREQUENCY : DAILY;?
     Route: 048
     Dates: start: 20201202
  2. SILDENAFIL [Concomitant]
     Active Substance: SILDENAFIL
  3. METOLAONE [Concomitant]
  4. FUROSEMIDE [Concomitant]
     Active Substance: FUROSEMIDE
  5. APIXABAN [Concomitant]
     Active Substance: APIXABAN
  6. METOPROLOL [Concomitant]
     Active Substance: METOPROLOL
  7. K-TAB [Concomitant]
     Active Substance: POTASSIUM CHLORIDE
  8. AZELAIC ACID [Concomitant]
     Active Substance: AZELAIC ACID
  9. PANTOPRAZOLE [Concomitant]
     Active Substance: PANTOPRAZOLE
  10. CALCIUM CARBONATE\ERGOCALCIFEROL\RETINOL [Concomitant]
     Active Substance: CALCIUM CARBONATE\ERGOCALCIFEROL\RETINOL
  11. ATORVASTATIN [Concomitant]
     Active Substance: ATORVASTATIN
  12. PANTOPRAZOLE [Concomitant]
     Active Substance: PANTOPRAZOLE
  13. MIRTAZAPINE [Concomitant]
     Active Substance: MIRTAZAPINE
  14. CETIRIZINE [Concomitant]
     Active Substance: CETIRIZINE HYDROCHLORIDE
  15. VICTRON-C [Concomitant]
  16. CALCIUM [Concomitant]
     Active Substance: CALCIUM
  17. CARB W/ VIT D [Concomitant]
  18. TRIAMCINOLONETOP OINT [Concomitant]
  19. MUPIROCIN TOP OINT [Concomitant]

REACTIONS (1)
  - Blood urea increased [None]

NARRATIVE: CASE EVENT DATE: 20230128
